FAERS Safety Report 7671279-8 (Version None)
Quarter: 2011Q3

REPORT INFORMATION
  Report Type: 
  Country: None (occurrence: None)
  Receive Date: 20110809
  Receipt Date: 20110804
  Transmission Date: 20111222
  Serious: Yes (Other)
  Sender: FDA-Public Use
  Company Number: US-BRISTOL-MYERS SQUIBB COMPANY-15952203

PATIENT

DRUGS (1)
  1. ABILIFY [Suspect]

REACTIONS (1)
  - HEPATIC FAILURE [None]
